FAERS Safety Report 14675275 (Version 2)
Quarter: 2018Q2

REPORT INFORMATION
  Report Type: Report from Study
  Country: US (occurrence: US)
  Receive Date: 20180323
  Receipt Date: 20180403
  Transmission Date: 20180711
  Serious: No
  Sender: FDA-Public Use
  Company Number: PHEH2018US011290

PATIENT
  Sex: Female

DRUGS (1)
  1. OMNITROPE [Suspect]
     Active Substance: SOMATROPIN
     Indication: PRODUCT USED FOR UNKNOWN INDICATION
     Route: 065

REACTIONS (8)
  - Asthenia [Unknown]
  - Fatigue [Unknown]
  - Depression [Unknown]
  - Nausea [Unknown]
  - Muscle strain [Unknown]
  - Tremor [Unknown]
  - Dizziness [Unknown]
  - Malaise [Unknown]
